FAERS Safety Report 5641912-0 (Version None)
Quarter: 2008Q1

REPORT INFORMATION
  Report Type: 
  Country: None (occurrence: None)
  Receive Date: 20080227
  Receipt Date: 20080215
  Transmission Date: 20080703
  Serious: Yes (Other)
  Sender: FDA-Public Use
  Company Number: US-PFIZER INC-2008015121

PATIENT
  Sex: Male
  Weight: 61.818 kg

DRUGS (3)
  1. NEURONTIN [Suspect]
     Indication: DIABETIC NEUROPATHY
     Route: 048
  2. MICRONASE [Concomitant]
     Indication: DIABETES MELLITUS
  3. VITAMINS [Concomitant]

REACTIONS (5)
  - ASTHENIA [None]
  - BALANCE DISORDER [None]
  - DRUG INEFFECTIVE [None]
  - MENTAL IMPAIRMENT [None]
  - PERONEAL NERVE PALSY [None]
